FAERS Safety Report 6299416-0 (Version None)
Quarter: 2009Q3

REPORT INFORMATION
  Report Type: 
  Country: None (occurrence: None)
  Receive Date: 20090806
  Receipt Date: 20090731
  Transmission Date: 20100115
  Serious: Yes (Hospitalization, Other)
  Sender: FDA-Public Use
  Company Number: CZ-AVENTIS-200914489EU

PATIENT
  Age: 26 Year
  Sex: Male

DRUGS (10)
  1. CLEXANE [Suspect]
     Indication: DEEP VEIN THROMBOSIS
     Route: 058
     Dates: start: 20090714
  2. WARFARIN [Suspect]
     Indication: DEEP VEIN THROMBOSIS
     Dosage: DOSE: UNK
     Route: 048
     Dates: start: 20090714, end: 20090722
  3. COXTRAL [Concomitant]
     Route: 048
     Dates: start: 20090713, end: 20090713
  4. GLYVENOL [Concomitant]
     Route: 048
     Dates: start: 20090713, end: 20090722
  5. FLAVOBION [Concomitant]
     Route: 048
     Dates: start: 20090713, end: 20090720
  6. NOVALGIN                           /00039501/ [Concomitant]
     Indication: PAIN
     Route: 048
     Dates: start: 20090713, end: 20090720
  7. ZINNAT [Concomitant]
     Route: 048
     Dates: start: 20090713, end: 20090720
  8. PARALEN [Concomitant]
     Route: 048
     Dates: start: 20090713, end: 20090714
  9. VITAMINS, OTHER COMBINATIONS [Concomitant]
     Route: 048
     Dates: start: 20090720
  10. VITAMINS, OTHER COMBINATIONS [Concomitant]
     Indication: PROPHYLAXIS
     Route: 048
     Dates: start: 20090720

REACTIONS (1)
  - LIVER FUNCTION TEST ABNORMAL [None]
